FAERS Safety Report 20240415 (Version 1)
Quarter: 2021Q4

REPORT INFORMATION
  Report Type: Spontaneous
  Country: US (occurrence: None)
  Receive Date: 20211228
  Receipt Date: 20211228
  Transmission Date: 20220303
  Serious: Yes (Hospitalization)
  Sender: FDA-Public Use
  Company Number: None

PATIENT
  Age: 67 Year
  Sex: Male
  Weight: 105.3 kg

DRUGS (12)
  1. CASIRIVIMAB\IMDEVIMAB [Suspect]
     Active Substance: CASIRIVIMAB\IMDEVIMAB
     Indication: COVID-19
     Dosage: FREQUENCY : ONCE;?
     Route: 042
     Dates: start: 20211217, end: 20211217
  2. DEXAMETHASONE [Concomitant]
     Active Substance: DEXAMETHASONE
     Dates: start: 20211217
  3. CARVEDILOL [Concomitant]
     Active Substance: CARVEDILOL
     Dates: start: 20211025
  4. ACETAMINOPHEN [Concomitant]
     Active Substance: ACETAMINOPHEN
     Dates: start: 20211217
  5. AMIODARONE [Concomitant]
     Active Substance: AMIODARONE
     Dates: start: 20211216, end: 20211219
  6. ATORVASTATIN [Concomitant]
     Active Substance: ATORVASTATIN
     Dates: start: 20211216, end: 20211219
  7. DOCUSATE SODIUM [Concomitant]
     Active Substance: DOCUSATE SODIUM
     Dates: start: 20211216, end: 20211219
  8. TORSEMIDE [Concomitant]
     Active Substance: TORSEMIDE
     Dates: start: 20211216, end: 20211219
  9. LEVOTHYROXINE [Concomitant]
     Active Substance: LEVOTHYROXINE
     Dates: start: 20211027
  10. APIXABAN [Concomitant]
     Active Substance: APIXABAN
     Dates: start: 20211025
  11. ASPIRIN [Concomitant]
     Active Substance: ASPIRIN
     Dates: start: 20211208
  12. VALSARTAN [Concomitant]
     Active Substance: VALSARTAN
     Dates: start: 20211025

REACTIONS (5)
  - Diarrhoea [None]
  - Asthenia [None]
  - Productive cough [None]
  - Oxygen saturation decreased [None]
  - Therapy non-responder [None]

NARRATIVE: CASE EVENT DATE: 20211223
